FAERS Safety Report 8518291-4 (Version None)
Quarter: 2012Q3

REPORT INFORMATION
  Report Type: 
  Country: None (occurrence: None)
  Receive Date: 20120718
  Receipt Date: 20120103
  Transmission Date: 20120928
  Serious: Yes (Other)
  Sender: FDA-Public Use
  Company Number: US-BRISTOL-MYERS SQUIBB COMPANY-16327041

PATIENT
  Age: 76 Year

DRUGS (1)
  1. COUMADIN [Suspect]

REACTIONS (2)
  - OESOPHAGEAL HAEMORRHAGE [None]
  - GASTROINTESTINAL HAEMORRHAGE [None]
